FAERS Safety Report 5862658-X (Version None)
Quarter: 2008Q3

REPORT INFORMATION
  Report Type: 
  Country: None (occurrence: None)
  Receive Date: 20080827
  Receipt Date: 20080827
  Transmission Date: 20090109
  Serious: No
  Sender: FDA-Public Use
  Company Number: None

PATIENT
  Age: 63 Year
  Sex: Male
  Weight: 68.0396 kg

DRUGS (1)
  1. HALOPERIDOL [Suspect]
     Dosage: 5MG DAILY PO
     Route: 048

REACTIONS (1)
  - RASH [None]
